FAERS Safety Report 8069171 (Version 3)
Quarter: 2013Q1

REPORT INFORMATION
  Report Type: Spontaneous
  Country: US (occurrence: US)
  Receive Date: 20110804
  Receipt Date: 20130315
  Transmission Date: 20140127
  Serious: Yes (Hospitalization)
  Sender: FDA-Public Use
  Company Number: US-GLAXOSMITHKLINE-A0756892A

PATIENT
  Age: 49 Year
  Sex: Male
  Weight: 95.5 kg

DRUGS (5)
  1. AVANDAMET [Suspect]
     Indication: TYPE 2 DIABETES MELLITUS
     Route: 048
     Dates: start: 200412, end: 20061011
  2. AVANDIA [Suspect]
     Indication: TYPE 2 DIABETES MELLITUS
     Dosage: 2MG TWICE PER DAY
     Route: 048
     Dates: start: 200505, end: 200506
  3. METOPROLOL [Concomitant]
  4. LIPITOR [Concomitant]
  5. METFORMIN [Concomitant]

REACTIONS (4)
  - Acute coronary syndrome [Not Recovered/Not Resolved]
  - Myocardial infarction [Unknown]
  - Myocardial ischaemia [Unknown]
  - Coronary artery disease [Unknown]
